FAERS Safety Report 14785094 (Version 1)
Quarter: 2018Q2

REPORT INFORMATION
  Report Type: Spontaneous
  Country: US (occurrence: US)
  Receive Date: 20180420
  Receipt Date: 20180420
  Transmission Date: 20180711
  Serious: Yes (Other)
  Sender: FDA-Public Use
  Company Number: US-PFIZER INC-2018157114

PATIENT
  Age: 56 Year
  Sex: Male

DRUGS (1)
  1. XELJANZ [Suspect]
     Active Substance: TOFACITINIB CITRATE
     Dosage: 10 MG, TWICE A DAY

REACTIONS (8)
  - Pneumonia [Unknown]
  - Otitis media acute [Unknown]
  - Floating patella [Unknown]
  - Acute sinusitis [Unknown]
  - Fall [Unknown]
  - Product use issue [Unknown]
  - Radius fracture [Unknown]
  - Bronchitis [Unknown]
